FAERS Safety Report 7340017-0 (Version None)
Quarter: 2011Q1

REPORT INFORMATION
  Report Type: 
  Country: None (occurrence: None)
  Receive Date: 20110309
  Receipt Date: 20110303
  Transmission Date: 20110831
  Serious: No
  Sender: FDA-Public Use
  Company Number: US-PFIZER INC-2011047370

PATIENT
  Sex: Female
  Weight: 61.2 kg

DRUGS (2)
  1. TEMAZEPAM [Concomitant]
     Indication: SLEEP DISORDER
     Dosage: 15 MG, UNK
  2. GABAPENTIN [Suspect]
     Indication: NERVOUS SYSTEM DISORDER
     Dosage: 300 MG, DAILY
     Route: 048
     Dates: start: 20091101

REACTIONS (1)
  - AGEUSIA [None]
